FAERS Safety Report 14264251 (Version 7)
Quarter: 2018Q2

REPORT INFORMATION
  Report Type: Spontaneous
  Country: PT (occurrence: PT)
  Receive Date: 20171208
  Receipt Date: 20180412
  Transmission Date: 20180711
  Serious: Yes (Death, Other)
  Sender: FDA-Public Use
  Company Number: PT-BAUSCH-BL-2017-032834

PATIENT
  Age: 32 Year
  Sex: Male

DRUGS (20)
  1. BROMAZEPAM [Suspect]
     Active Substance: BROMAZEPAM
     Indication: BIPOLAR DISORDER
     Route: 048
  2. FLUOXETINE [Suspect]
     Active Substance: FLUOXETINE HYDROCHLORIDE
     Indication: SUICIDE ATTEMPT
  3. DIAZEPAM. [Suspect]
     Active Substance: DIAZEPAM
     Indication: SUICIDE ATTEMPT
     Route: 048
  4. OLANZAPINE. [Suspect]
     Active Substance: OLANZAPINE
     Indication: BIPOLAR DISORDER
     Route: 048
  5. RISPERIDONE. [Suspect]
     Active Substance: RISPERIDONE
     Indication: BIPOLAR DISORDER
     Route: 048
  6. HALOPERIDOL. [Suspect]
     Active Substance: HALOPERIDOL
     Indication: BIPOLAR DISORDER
     Route: 048
  7. PAROXETINE. [Suspect]
     Active Substance: PAROXETINE
     Indication: SUICIDE ATTEMPT
  8. LORAZEPAM. [Suspect]
     Active Substance: LORAZEPAM
     Indication: INTENTIONAL OVERDOSE
     Route: 048
  9. PAROXETINE. [Suspect]
     Active Substance: PAROXETINE
     Indication: BIPOLAR DISORDER
     Route: 048
  10. LORAZEPAM. [Suspect]
     Active Substance: LORAZEPAM
     Indication: BIPOLAR DISORDER
     Route: 048
  11. HALOPERIDOL. [Suspect]
     Active Substance: HALOPERIDOL
     Indication: INTENTIONAL OVERDOSE
     Route: 048
  12. BROMAZEPAM [Suspect]
     Active Substance: BROMAZEPAM
     Indication: INTENTIONAL OVERDOSE
     Route: 048
  13. QUETIAPINE. [Suspect]
     Active Substance: QUETIAPINE
     Indication: INTENTIONAL OVERDOSE
     Route: 048
  14. FLUOXETINE [Suspect]
     Active Substance: FLUOXETINE HYDROCHLORIDE
     Indication: BIPOLAR DISORDER
     Route: 048
  15. FLUOXETINE [Suspect]
     Active Substance: FLUOXETINE HYDROCHLORIDE
     Indication: INTENTIONAL OVERDOSE
     Route: 048
  16. RISPERIDONE. [Suspect]
     Active Substance: RISPERIDONE
     Indication: SUICIDE ATTEMPT
     Route: 048
  17. PAROXETINE. [Suspect]
     Active Substance: PAROXETINE
     Indication: INTENTIONAL OVERDOSE
     Route: 048
  18. NORDIAZEPAM [Suspect]
     Active Substance: NORDAZEPAM
     Indication: SUICIDE ATTEMPT
     Route: 048
  19. QUETIAPINE. [Suspect]
     Active Substance: QUETIAPINE
     Indication: BIPOLAR DISORDER
     Route: 048
  20. OLANZAPINE. [Suspect]
     Active Substance: OLANZAPINE
     Indication: INTENTIONAL OVERDOSE
     Route: 048

REACTIONS (10)
  - Pulmonary congestion [Fatal]
  - Intentional overdose [Fatal]
  - Acute pulmonary oedema [Fatal]
  - Visceral congestion [Fatal]
  - Cerebrovascular stenosis [Fatal]
  - Completed suicide [Fatal]
  - Angiopathy [Fatal]
  - Toxicity to various agents [Fatal]
  - Vascular occlusion [Fatal]
  - Oral discharge [Fatal]
